FAERS Safety Report 7534646-9 (Version None)
Quarter: 2011Q2

REPORT INFORMATION
  Report Type: 
  Country: None (occurrence: None)
  Receive Date: 20110609
  Receipt Date: 20110215
  Transmission Date: 20111010
  Serious: No
  Sender: FDA-Public Use
  Company Number: PHHY2011US12046

PATIENT
  Sex: Female

DRUGS (18)
  1. VENTOLIN HFA [Concomitant]
  2. ZEGERID [Concomitant]
  3. SINGULAIR [Concomitant]
     Dosage: UNK
  4. OMEGA-3 FATTY ACIDS [Concomitant]
  5. DIAZEPAM [Concomitant]
     Dosage: 10 MG, UNK
  6. MULTI-VITAMINS [Concomitant]
  7. TASIGNA [Suspect]
     Dosage: 200 MG, X 4 DAILY
     Route: 048
  8. LOSARTAN POTASSIUM AND HYDROCHLOROTHIAZIDE [Suspect]
  9. VITAMIN B COMPLEX CAP [Concomitant]
  10. METFFORMIN HYDROCHLORIDE [Concomitant]
     Dosage: 500 MG, UNK
  11. CYMBALTA [Concomitant]
     Dosage: 60 MG, UNK
  12. JANUVIA [Concomitant]
     Dosage: 100 MG, UNK
  13. CELEBREX [Concomitant]
     Dosage: 200 MG, UNK
  14. VITAMIN D [Concomitant]
     Dosage: UNK
  15. LYRICA [Concomitant]
  16. ZOLPIDEM [Concomitant]
  17. ADVAIR DISKUS 100/50 [Concomitant]
     Dosage: 230 MCQ BID
  18. FEXOFENADINE HCL [Concomitant]

REACTIONS (2)
  - BLOOD PRESSURE DECREASED [None]
  - FATIGUE [None]
